FAERS Safety Report 25491447 (Version 2)
Quarter: 2025Q3

REPORT INFORMATION
  Report Type: Spontaneous
  Country: CN (occurrence: CN)
  Receive Date: 20250629
  Receipt Date: 20250703
  Transmission Date: 20251021
  Serious: Yes (Hospitalization)
  Sender: ABBVIE
  Company Number: CN-JNJFOC-20250622760

PATIENT
  Age: 54 Year
  Sex: Male

DRUGS (3)
  1. IBRUTINIB [Suspect]
     Active Substance: IBRUTINIB
     Indication: Chronic lymphocytic leukaemia
     Route: 048
  2. OBINUTUZUMAB [Suspect]
     Active Substance: OBINUTUZUMAB
     Indication: Chronic lymphocytic leukaemia
     Route: 065
  3. METHYLPREDNISOLONE [Suspect]
     Active Substance: METHYLPREDNISOLONE
     Indication: Paraneoplastic pemphigus
     Route: 065

REACTIONS (1)
  - Drug eruption [Recovering/Resolving]
